FAERS Safety Report 5200375-X (Version None)
Quarter: 2007Q1

REPORT INFORMATION
  Report Type: 
  Country: None (occurrence: None)
  Receive Date: 20070105
  Receipt Date: 20061227
  Transmission Date: 20070707
  Serious: Yes (Hospitalization, Other)
  Sender: FDA-Public Use
  Company Number: US-PFIZER INC-2006156061

PATIENT
  Sex: Male

DRUGS (1)
  1. ZMAX [Suspect]
     Indication: PNEUMONIA

REACTIONS (1)
  - ATRIAL FIBRILLATION [None]
